FAERS Safety Report 9688438 (Version 2)
Quarter: 2013Q4

REPORT INFORMATION
  Report Type: Spontaneous
  Country: US (occurrence: US)
  Receive Date: 20131114
  Receipt Date: 20131213
  Transmission Date: 20140711
  Serious: No
  Sender: FDA-Public Use
  Company Number: US-SA-2013SA115655

PATIENT
  Age: 59 Year
  Sex: Male
  Weight: 65.31 kg

DRUGS (18)
  1. MULTAQ [Suspect]
     Indication: ARRHYTHMIA PROPHYLAXIS
     Route: 048
     Dates: start: 201209
  2. XANAX [Concomitant]
     Route: 065
  3. ASPIRIN [Concomitant]
     Route: 065
  4. CALCIUM CITRATE [Concomitant]
     Route: 065
  5. PROSCAR [Concomitant]
     Route: 065
  6. IRON [Concomitant]
     Dosage: DOSE:-5 ML (300 MG)
     Route: 065
  7. NORCO [Concomitant]
     Route: 065
  8. PRILOSEC [Concomitant]
     Route: 065
  9. ZOCOR [Concomitant]
     Route: 065
  10. FLOMAX [Concomitant]
     Route: 065
  11. WARFARIN [Concomitant]
     Route: 065
  12. LASIX [Concomitant]
     Route: 065
  13. KLOR-CON [Concomitant]
     Route: 065
  14. SKELAXIN [Concomitant]
     Route: 065
  15. NITROSTAT [Concomitant]
     Route: 065
  16. ZANTAC [Concomitant]
     Route: 065
  17. TYLENOL [Concomitant]
     Route: 065
  18. MULTIVITAMINS [Concomitant]
     Route: 065

REACTIONS (10)
  - Weight decreased [Not Recovered/Not Resolved]
  - Gastrointestinal disorder [Not Recovered/Not Resolved]
  - Vomiting [Not Recovered/Not Resolved]
  - Muscle twitching [Recovered/Resolved]
  - Heart rate increased [Recovered/Resolved]
  - Wrong technique in drug usage process [Unknown]
  - Decreased appetite [Not Recovered/Not Resolved]
  - Nausea [Not Recovered/Not Resolved]
  - Asthenia [Not Recovered/Not Resolved]
  - Blood creatinine increased [Not Recovered/Not Resolved]
